FAERS Safety Report 4982600-3 (Version None)
Quarter: 2006Q2

REPORT INFORMATION
  Report Type: 
  Country: None (occurrence: None)
  Receive Date: 20060420
  Receipt Date: 20060412
  Transmission Date: 20061013
  Serious: No
  Sender: FDA-Public Use
  Company Number: 06H-163-0307289-00

PATIENT
  Age: 60 Year
  Sex: Female

DRUGS (4)
  1. EPINEPHRINE [Suspect]
     Dosage: OPHTHALMIC
     Route: 047
     Dates: start: 20060320, end: 20060320
  2. BSS [Suspect]
     Dosage: OPHTHALMIC
     Route: 047
     Dates: start: 20060320, end: 20060320
  3. PHISOHEX [Suspect]
     Indication: PREOPERATIVE CARE
     Dosage: TOPICAL
     Route: 061
     Dates: start: 20060320, end: 20060320
  4. VIGAMOX [Concomitant]

REACTIONS (3)
  - ENDOPHTHALMITIS [None]
  - EYE INFECTION INTRAOCULAR [None]
  - EYE INFECTION STAPHYLOCOCCAL [None]
